FAERS Safety Report 6081382-4 (Version None)
Quarter: 2009Q1

REPORT INFORMATION
  Report Type: 
  Country: None (occurrence: None)
  Receive Date: 20090218
  Receipt Date: 20090209
  Transmission Date: 20090719
  Serious: Yes (Death)
  Sender: FDA-Public Use
  Company Number: IT-CELGENEUS-083-21880-09020472

PATIENT
  Sex: Male
  Weight: 72 kg

DRUGS (12)
  1. REVLIMID [Suspect]
     Indication: AMYLOIDOSIS
     Route: 048
     Dates: start: 20090111, end: 20090201
  2. CYCLOPHOSPHAMIDE [Suspect]
     Indication: AMYLOIDOSIS
     Route: 065
     Dates: start: 20090111, end: 20090201
  3. DEXAMETHASONE [Suspect]
     Indication: AMYLOIDOSIS
     Route: 065
     Dates: start: 20090111, end: 20090201
  4. AMIODARONE [Concomitant]
     Indication: DRUG USE FOR UNKNOWN INDICATION
     Route: 048
     Dates: end: 20090207
  5. OMEPRAZOLE [Concomitant]
     Indication: DRUG USE FOR UNKNOWN INDICATION
     Route: 048
     Dates: end: 20090207
  6. NADROPARIN [Concomitant]
     Indication: DRUG USE FOR UNKNOWN INDICATION
     Route: 058
     Dates: start: 20080810, end: 20090207
  7. CIPROFLOXACIN HCL [Concomitant]
     Indication: DRUG USE FOR UNKNOWN INDICATION
     Route: 048
     Dates: start: 20080921, end: 20081012
  8. TRIMETOPRIM + SULFAMETOXAZOL [Concomitant]
     Indication: DRUG USE FOR UNKNOWN INDICATION
     Route: 048
     Dates: start: 20081108, end: 20090107
  9. TRIMETOPRIM + SULFAMETOXAZOL [Concomitant]
     Route: 048
     Dates: start: 20090111, end: 20090201
  10. TRIMETOPRIM + SULFAMETOXAZOL [Concomitant]
     Route: 048
     Dates: start: 20090204, end: 20090207
  11. FILGRASTIM [Concomitant]
     Indication: DRUG USE FOR UNKNOWN INDICATION
     Route: 058
     Dates: start: 20081128, end: 20081231
  12. FILGRASTIM [Concomitant]
     Route: 058
     Dates: start: 20090204, end: 20090207

REACTIONS (1)
  - DEATH [None]
